FAERS Safety Report 9364795 (Version 1)
Quarter: 2013Q2

REPORT INFORMATION
  Report Type: Spontaneous
  Country: US (occurrence: US)
  Receive Date: 20130624
  Receipt Date: 20130624
  Transmission Date: 20140414
  Serious: No
  Sender: FDA-Public Use
  Company Number: US-US-EMD SERONO, INC.-7100828

PATIENT
  Age: 34 Year
  Sex: Female

DRUGS (1)
  1. REBIF [Suspect]
     Indication: PRODUCT USED FOR UNKNOWN INDICATION
     Route: 058
     Dates: start: 20110919, end: 2012

REACTIONS (5)
  - Cystitis [Recovered/Resolved]
  - Malaise [Unknown]
  - Injection site pain [Unknown]
  - Injection site urticaria [Unknown]
  - Drug ineffective [Unknown]
